FAERS Safety Report 15178036 (Version 1)
Quarter: 2018Q3

REPORT INFORMATION
  Report Type: Spontaneous
  Country: US (occurrence: US)
  Receive Date: 20180721
  Receipt Date: 20180721
  Transmission Date: 20181010
  Serious: No
  Sender: FDA-Public Use
  Company Number: US-JNJFOC-20180625876

PATIENT
  Age: 78 Year
  Sex: Female
  Weight: 72.58 kg

DRUGS (2)
  1. NIZORAL A?D [Suspect]
     Active Substance: KETOCONAZOLE
     Indication: PRURITUS
     Dosage: ONE FINGERTIP, USED ONLY TWICE
     Route: 061
  2. NIZORAL A?D [Suspect]
     Active Substance: KETOCONAZOLE
     Indication: ACNE
     Dosage: ONE FINGERTIP, USED ONLY TWICE
     Route: 061

REACTIONS (2)
  - Drug ineffective for unapproved indication [Unknown]
  - Expired product administered [Unknown]
